FAERS Safety Report 19566987 (Version 8)
Quarter: 2022Q1

REPORT INFORMATION
  Report Type: Spontaneous
  Country: PL (occurrence: None)
  Receive Date: 20210715
  Receipt Date: 20220322
  Transmission Date: 20220423
  Serious: Yes (Hospitalization, Other)
  Sender: FDA-Public Use
  Company Number: 2021A601522

PATIENT
  Age: 62 Year
  Sex: Male
  Weight: 98 kg

DRUGS (23)
  1. ROSUVASTATIN [Suspect]
     Active Substance: ROSUVASTATIN
     Indication: Product used for unknown indication
     Dosage: IN THE EVENING
     Route: 065
  2. ROSUVASTATIN [Suspect]
     Active Substance: ROSUVASTATIN
     Indication: Product used for unknown indication
     Route: 065
  3. PANTOPRAZOLE [Suspect]
     Active Substance: PANTOPRAZOLE
     Indication: Product used for unknown indication
     Dosage: IN THE MORNING
     Route: 065
  4. LINAGLIPTIN [Suspect]
     Active Substance: LINAGLIPTIN
     Indication: Product used for unknown indication
     Route: 065
  5. AMLODIPINE [Suspect]
     Active Substance: AMLODIPINE BESYLATE
     Indication: Product used for unknown indication
     Dosage: IN MORNING
     Route: 065
  6. TELMISARTAN [Suspect]
     Active Substance: TELMISARTAN
     Indication: Product used for unknown indication
     Dosage: IN MORNING
     Route: 065
  7. METFORMIN HYDROCHLORIDE [Suspect]
     Active Substance: METFORMIN HYDROCHLORIDE
     Indication: Product used for unknown indication
     Route: 065
  8. METFORMIN HYDROCHLORIDE [Suspect]
     Active Substance: METFORMIN HYDROCHLORIDE
     Indication: Product used for unknown indication
     Route: 065
  9. FENOBIBRATE [Suspect]
     Active Substance: FENOFIBRATE
     Indication: Product used for unknown indication
     Dosage: 215 MG, QD (IN THE MORNING)
     Route: 065
  10. ASPIRIN [Suspect]
     Active Substance: ASPIRIN
     Indication: Product used for unknown indication
     Dosage: IN THE EVENING
     Route: 065
  11. HYDROCHLOROTHIAZIDE [Suspect]
     Active Substance: HYDROCHLOROTHIAZIDE
     Indication: Product used for unknown indication
     Dosage: 12.5 MG, QD IN MORNING
     Route: 065
  12. CARVEDILOL [Suspect]
     Active Substance: CARVEDILOL
     Indication: Product used for unknown indication
     Route: 065
  13. CARVEDILOL [Suspect]
     Active Substance: CARVEDILOL
     Indication: Product used for unknown indication
     Route: 065
  14. CARVEDILOL [Suspect]
     Active Substance: CARVEDILOL
     Indication: Product used for unknown indication
     Dosage: 25.0MG UNKNOWN
     Route: 065
  15. FLUTICASONE PROPIONATE\SALMETEROL XINAFOATE [Suspect]
     Active Substance: FLUTICASONE PROPIONATE\SALMETEROL XINAFOATE
     Indication: Product used for unknown indication
     Dosage: 2 DF (250 ?G +50 UG) INHALATION2.0DF UNKNOWN
     Route: 055
  16. TRIMETAZIDINE [Suspect]
     Active Substance: TRIMETAZIDINE
     Indication: Product used for unknown indication
     Dosage: 20 MG, BID (MORNING AND EVENING)
     Route: 065
  17. TRIMETAZIDINE [Suspect]
     Active Substance: TRIMETAZIDINE
     Indication: Product used for unknown indication
     Route: 065
  18. BISOPROLOL [Suspect]
     Active Substance: BISOPROLOL
     Indication: Cardiac failure
     Dosage: 8.0MG UNKNOWN
     Route: 065
  19. BISOPROLOL [Suspect]
     Active Substance: BISOPROLOL
     Indication: Coronary artery disease
     Dosage: 8.0MG UNKNOWN
     Route: 065
  20. RAMIPRIL [Suspect]
     Active Substance: RAMIPRIL
     Indication: Coronary artery disease
     Dosage: UNKNOWN
     Route: 065
  21. RAMIPRIL [Suspect]
     Active Substance: RAMIPRIL
     Indication: Cardiac failure
     Dosage: UNKNOWN
     Route: 065
  22. CLOPIDOGREL [Concomitant]
     Active Substance: CLOPIDOGREL BISULFATE
     Indication: Postoperative care
     Route: 065
  23. ESOMEPRAZOLE [Concomitant]
     Active Substance: ESOMEPRAZOLE
     Indication: Renal failure
     Dosage: 20.0MG UNKNOWN
     Route: 065

REACTIONS (47)
  - Intestinal obstruction [Unknown]
  - Helicobacter gastritis [Unknown]
  - Rales [Unknown]
  - Dyspnoea at rest [Unknown]
  - Ventricular hypokinesia [Unknown]
  - Carotid arteriosclerosis [Unknown]
  - Hepatojugular reflux [Unknown]
  - Acute myocardial infarction [Unknown]
  - Carotid artery stenosis [Unknown]
  - Palpitations [Unknown]
  - Occult blood [Unknown]
  - Asthenia [Unknown]
  - Hyperlipidaemia [Unknown]
  - Anaemia macrocytic [Unknown]
  - Hypotension [Unknown]
  - Syncope [Unknown]
  - Ventricular arrhythmia [Unknown]
  - Electrocardiogram QT prolonged [Unknown]
  - Fatigue [Unknown]
  - Tricuspid valve incompetence [Unknown]
  - Mitral valve incompetence [Unknown]
  - Diastolic dysfunction [Unknown]
  - Cardiac failure [Unknown]
  - Supraventricular tachycardia [Unknown]
  - Ventricular tachycardia [Unknown]
  - Mitral valve incompetence [Unknown]
  - Coronary artery disease [Unknown]
  - Angiopathy [Unknown]
  - Acute kidney injury [Unknown]
  - Tricuspid valve incompetence [Unknown]
  - Oedema peripheral [Unknown]
  - Chronic kidney disease [Unknown]
  - Ejection fraction decreased [Unknown]
  - Cardiomegaly [Unknown]
  - Left ventricular dysfunction [Unknown]
  - Pericardial disease [Unknown]
  - Skin lesion [Unknown]
  - Ill-defined disorder [Unknown]
  - Pulmonary valve disease [Unknown]
  - Bundle branch block left [Unknown]
  - Rales [Unknown]
  - Stenosis [Unknown]
  - Physical examination abnormal [Unknown]
  - Joint swelling [Unknown]
  - Mitral valve disease [Unknown]
  - Cardiac discomfort [Unknown]
  - Echocardiogram abnormal [Unknown]

NARRATIVE: CASE EVENT DATE: 20180918
